FAERS Safety Report 9840141 (Version 1)
Quarter: 2013Q4

REPORT INFORMATION
  Report Type: Spontaneous
  Country: US (occurrence: None)
  Receive Date: 20131211
  Receipt Date: 20131211
  Transmission Date: 20140711
  Serious: Yes (Other)
  Sender: FDA-Public Use
  Company Number: ALL1-2013-00540

PATIENT
  Age: 35 Year
  Sex: Female
  Weight: 81.6 kg

DRUGS (11)
  1. FIRAZYR [Suspect]
     Indication: HEREDITARY ANGIOEDEMA
     Route: 058
     Dates: start: 20121013
  2. TURMERIC [Concomitant]
  3. VALACYCLOVIR HCL (VALACICLOVIR HYDROCHLORIDE) [Concomitant]
  4. CODEINE SULFATE (CODEINE SULFATE) [Concomitant]
  5. RANITIDINE (RANITIDINE) [Concomitant]
  6. CETOROZOMECETIRIZINE) [Concomitant]
  7. LEVOTHYROXINE (LEVOTHYROXINE) [Concomitant]
  8. VITAMIN B12 (CYANOCOBALAMIN) [Concomitant]
  9. VITAMINS, OTHER COMBINATION [Concomitant]
  10. GINGER [Concomitant]
  11. MICRONOR (NORETHISTRONE) [Concomitant]

REACTIONS (1)
  - Injection site urticaria [None]
